FAERS Safety Report 11992146 (Version 1)
Quarter: 2016Q1

REPORT INFORMATION
  Report Type: Spontaneous
  Country: US (occurrence: US)
  Receive Date: 20160203
  Receipt Date: 20160203
  Transmission Date: 20160526
  Serious: No
  Sender: FDA-Public Use
  Company Number: US-JNJFOC-20151213423

PATIENT
  Age: 80 Year
  Sex: Female
  Weight: 55.34 kg

DRUGS (4)
  1. EXTRA STRENGTH TYLENOL CAPLETS [Suspect]
     Active Substance: ACETAMINOPHEN
     Route: 048
  2. LOSARTAN AND HYDROCHLOROTHIAZIDE [Concomitant]
     Active Substance: HYDROCHLOROTHIAZIDE\LOSARTAN POTASSIUM
     Indication: HYPERTENSION
     Route: 065
     Dates: start: 20151012
  3. EXTRA STRENGTH TYLENOL CAPLETS [Suspect]
     Active Substance: ACETAMINOPHEN
     Indication: HEADACHE
     Dosage: 1 CAPLET EVERY 8 HOURS
     Route: 048
     Dates: start: 20151213, end: 20151214
  4. BYSTOLIC [Concomitant]
     Active Substance: NEBIVOLOL HYDROCHLORIDE
     Indication: HYPERTENSION
     Route: 065
     Dates: start: 20151012

REACTIONS (2)
  - Blood pressure increased [Not Recovered/Not Resolved]
  - Product packaging issue [Unknown]

NARRATIVE: CASE EVENT DATE: 20151213
